FAERS Safety Report 22634412 (Version 1)
Quarter: 2023Q2

REPORT INFORMATION
  Report Type: Spontaneous
  Country: US (occurrence: None)
  Receive Date: 20230620
  Receipt Date: 20230620
  Transmission Date: 20230722
  Serious: Yes (Hospitalization, Other)
  Sender: FDA-Public Use
  Company Number: None

PATIENT
  Sex: Male

DRUGS (1)
  1. EVEROLIMUS [Suspect]
     Active Substance: EVEROLIMUS

REACTIONS (8)
  - Headache [None]
  - Head injury [None]
  - Blood pressure increased [None]
  - Dehydration [None]
  - Constipation [None]
  - Stomatitis [None]
  - Erythema [None]
  - Skin disorder [None]
